FAERS Safety Report 7276852-7 (Version None)
Quarter: 2011Q1

REPORT INFORMATION
  Report Type: 
  Country: None (occurrence: None)
  Receive Date: 20110207
  Receipt Date: 20110124
  Transmission Date: 20110831
  Serious: Yes (Death)
  Sender: FDA-Public Use
  Company Number: 2007BI005334

PATIENT
  Age: 40 Year
  Sex: Female

DRUGS (6)
  1. TYSABRI [Suspect]
     Indication: MULTIPLE SCLEROSIS
     Route: 042
     Dates: start: 20061208, end: 20070202
  2. BACLOFEN [Concomitant]
     Indication: MULTIPLE SCLEROSIS
  3. ZOPICLONE [Concomitant]
     Indication: SLEEP DISORDER
  4. PROPAVAN [Concomitant]
     Indication: PRODUCT USED FOR UNKNOWN INDICATION
     Dates: start: 20070121, end: 20070124
  5. MIRTAZAPINE [Concomitant]
     Indication: SLEEP DISORDER
  6. MAXALT [Concomitant]
     Indication: PRODUCT USED FOR UNKNOWN INDICATION

REACTIONS (4)
  - COMPLETED SUICIDE [None]
  - NAUSEA [None]
  - TACHYCARDIA [None]
  - MULTIPLE SCLEROSIS RELAPSE [None]
